FAERS Safety Report 8971012 (Version 1)
Quarter: 2012Q4

REPORT INFORMATION
  Report Type: 
  Country: US (occurrence: US)
  Receive Date: 20121218
  Receipt Date: 20121218
  Transmission Date: 20130627
  Serious: No
  Sender: FDA-Public Use
  Company Number: US-BRISTOL-MYERS SQUIBB COMPANY-17027897

PATIENT
  Age: 4 None
  Sex: Female

DRUGS (2)
  1. ABILIFY [Suspect]
     Indication: BIPOLAR DISORDER
     Dosage: decreased the Abilify dose to 7.5mg
  2. DEPAKOTE [Concomitant]

REACTIONS (2)
  - Resting tremor [Recovering/Resolving]
  - Sedation [Unknown]
